FAERS Safety Report 9187565 (Version 1)
Quarter: 2013Q1

REPORT INFORMATION
  Report Type: Spontaneous
  Country: US (occurrence: US)
  Receive Date: 20130325
  Receipt Date: 20130325
  Transmission Date: 20140127
  Serious: No
  Sender: FDA-Public Use
  Company Number: US-PFIZER INC-2013090630

PATIENT
  Age: 64 Year
  Sex: Female
  Weight: 68.03 kg

DRUGS (3)
  1. PREMARIN [Suspect]
     Indication: HYSTERECTOMY
     Dosage: UNK, EVERY THREE DAYS
     Route: 048
     Dates: start: 1986
  2. PREMARIN [Suspect]
     Dosage: HALF OF A 0.625 MG TAB, EVERY OTHER DAY
     Dates: end: 2013
  3. PREMARIN [Suspect]
     Dosage: SPLITTING ONE TABLET OF 0.625 MG INTO HALF
     Dates: start: 20130310

REACTIONS (4)
  - Drug hypersensitivity [Unknown]
  - Urticaria [Unknown]
  - Incorrect dose administered [Unknown]
  - Inappropriate schedule of drug administration [Unknown]
